FAERS Safety Report 22123304 (Version 1)
Quarter: 2023Q1

REPORT INFORMATION
  Report Type: Report from Study
  Country: GB (occurrence: GB)
  Receive Date: 20230322
  Receipt Date: 20230322
  Transmission Date: 20230417
  Serious: Yes (Death, Other)
  Sender: FDA-Public Use
  Company Number: GB-CELLTRION INC.-2023GB005707

PATIENT

DRUGS (65)
  1. TRASTUZUMAB [Suspect]
     Active Substance: TRASTUZUMAB
     Indication: Breast cancer metastatic
     Dosage: 441 MILLIGRAM, EVERY 3 WEEKS
     Route: 041
     Dates: start: 20210312
  2. TRASTUZUMAB [Suspect]
     Active Substance: TRASTUZUMAB
     Dosage: 441 MILLIGRAM, EVERY 3 WEEKS
     Route: 041
     Dates: start: 20210312
  3. TRASTUZUMAB [Suspect]
     Active Substance: TRASTUZUMAB
     Dosage: 378 MG, EVERY 3 WEEK
     Route: 042
     Dates: start: 20210422
  4. TRASTUZUMAB [Suspect]
     Active Substance: TRASTUZUMAB
     Dosage: 378 MG, EVERY 3 WEEK
     Route: 042
     Dates: start: 20210422
  5. TRASTUZUMAB [Suspect]
     Active Substance: TRASTUZUMAB
     Dosage: 120 MG, EVERY 3 WEEKS
     Route: 058
     Dates: start: 20210826, end: 20220512
  6. TRASTUZUMAB [Suspect]
     Active Substance: TRASTUZUMAB
     Dosage: 120 MG, EVERY 3 WEEKS
     Route: 058
     Dates: start: 20210826, end: 20220512
  7. TRASTUZUMAB [Suspect]
     Active Substance: TRASTUZUMAB
     Dosage: 120 MG, EVERY 3 WEEKS
     Route: 058
     Dates: start: 20210826, end: 20220512
  8. TRASTUZUMAB [Suspect]
     Active Substance: TRASTUZUMAB
     Dosage: 120 MG, EVERY 3 WEEKS
     Route: 058
     Dates: start: 20210826, end: 20220512
  9. CAPECITABINE [Suspect]
     Active Substance: CAPECITABINE
     Indication: Breast cancer metastatic
     Dosage: 4600 MILLIGRAM, EVERY 1 DAY
     Route: 048
     Dates: start: 20180228, end: 20180313
  10. CAPECITABINE [Suspect]
     Active Substance: CAPECITABINE
     Dosage: 4600 MILLIGRAM, EVERY 1 DAY
     Route: 048
     Dates: start: 20180228, end: 20180313
  11. CAPECITABINE [Suspect]
     Active Substance: CAPECITABINE
     Dosage: 4300 MILLIGRAM, EVERY 1 DAY
     Route: 048
     Dates: start: 20180321, end: 20180403
  12. CAPECITABINE [Suspect]
     Active Substance: CAPECITABINE
     Dosage: 4300 MILLIGRAM, EEVERY 1 DAY
     Route: 048
     Dates: start: 20180321, end: 20180403
  13. CAPECITABINE [Suspect]
     Active Substance: CAPECITABINE
     Dosage: 2000 MILLIGRAM
     Route: 048
     Dates: start: 20180411, end: 20180605
  14. CAPECITABINE [Suspect]
     Active Substance: CAPECITABINE
     Dosage: 2000 MILLIGRAM
     Route: 048
     Dates: start: 20180411, end: 20180605
  15. EXEMESTANE [Suspect]
     Active Substance: EXEMESTANE
     Indication: Breast cancer metastatic
     Dosage: 25 MILLIGRAM, 1 DAY
     Route: 048
     Dates: start: 20180920
  16. HYALURONIDASE [Suspect]
     Active Substance: HYALURONIDASE
     Indication: Breast cancer metastatic
     Dosage: 600 MG, EVERY 3 WEEKS
     Route: 058
     Dates: start: 20180228
  17. LETROZOLE [Suspect]
     Active Substance: LETROZOLE
     Indication: Breast cancer metastatic
     Dosage: 2.5 MG, EVERY 1 DAY; MOST RECENT DATE OF DOSE: 28/FEB/2018
     Route: 048
     Dates: start: 20170718
  18. PERTUZUMAB [Suspect]
     Active Substance: PERTUZUMAB
     Indication: Breast cancer metastatic
     Dosage: 840 MG; ONCE AS LOADING DOSE
     Route: 042
     Dates: start: 20210312, end: 20210312
  19. PERTUZUMAB [Suspect]
     Active Substance: PERTUZUMAB
     Dosage: 840 MG; ONCE AS LOADING DOSE
     Route: 042
     Dates: start: 20210312, end: 20210312
  20. PERTUZUMAB [Suspect]
     Active Substance: PERTUZUMAB
     Dosage: 420 MG, EVERY 3 WEEKS
     Route: 042
     Dates: start: 20210402, end: 20210805
  21. PERTUZUMAB [Suspect]
     Active Substance: PERTUZUMAB
     Dosage: 420 MG, EVERY 3 WEEKS
     Route: 042
     Dates: start: 20210402, end: 20210805
  22. TRASTUZUMAB [Suspect]
     Active Substance: TRASTUZUMAB
     Indication: Breast cancer metastatic
     Dosage: 600MG, EVERY 3 WEEKS
     Route: 058
     Dates: start: 20180228
  23. TRASTUZUMAB [Suspect]
     Active Substance: TRASTUZUMAB
     Dosage: 600MG, EVERY 3 WEEKS
     Route: 058
     Dates: start: 20180228
  24. TRASTUZUMAB [Suspect]
     Active Substance: TRASTUZUMAB
     Dosage: 600 MG, EVERY 3 WEEKS
     Route: 058
     Dates: start: 20220512
  25. TRASTUZUMAB [Suspect]
     Active Substance: TRASTUZUMAB
     Dosage: 600 MG, EVERY 3 WEEKS
     Route: 058
     Dates: start: 20220512
  26. ALTEPLASE [Concomitant]
     Active Substance: ALTEPLASE
     Dosage: 40 MG, EVERY 1 DAY
     Dates: start: 20181005, end: 20181007
  27. ALTEPLASE [Concomitant]
     Active Substance: ALTEPLASE
     Dosage: 20 MG, EVERY 1 DAY
     Dates: start: 20190107, end: 20190110
  28. AZATHIOPRINE [Concomitant]
     Active Substance: AZATHIOPRINE
     Dosage: 150MG, EVERY 1 DAY
     Route: 048
     Dates: start: 201001, end: 20180228
  29. BENZYDAMINE [Concomitant]
     Active Substance: BENZYDAMINE
     Indication: Product used for unknown indication
  30. COCODAMOL [Concomitant]
     Active Substance: ACETAMINOPHEN\CODEINE PHOSPHATE
     Indication: Product used for unknown indication
     Dosage: 530 MG
     Route: 048
     Dates: start: 20180215
  31. CYCLIZINE [Concomitant]
     Active Substance: CYCLIZINE
     Indication: Product used for unknown indication
     Dosage: 50 MG
     Route: 048
     Dates: start: 20180216, end: 20180217
  32. DALTEPARIN [Concomitant]
     Active Substance: DALTEPARIN
     Indication: Product used for unknown indication
     Dosage: 5000 IU
     Dates: start: 20180606, end: 20180607
  33. DALTEPARIN [Concomitant]
     Active Substance: DALTEPARIN
     Dosage: 2.5 MG
     Dates: start: 20180215, end: 20180216
  34. DOMPERIDONE [Concomitant]
     Active Substance: DOMPERIDONE
     Indication: Product used for unknown indication
     Dosage: 30 MG, EVERY 1 DAY
     Route: 048
     Dates: start: 20180228, end: 20180313
  35. FLUOROURACIL [Concomitant]
     Active Substance: FLUOROURACIL
     Dosage: 40 G, EVERY 1 DAY
     Route: 061
     Dates: start: 20200214, end: 20200330
  36. EUMOVATE [Concomitant]
     Active Substance: CLOBETASONE BUTYRATE
     Dosage: 30 G, EVERY 1 DAY
     Route: 061
     Dates: start: 20200214, end: 20200222
  37. FLUCLOXACILLIN [Concomitant]
     Active Substance: FLUCLOXACILLIN
     Indication: Product used for unknown indication
     Dosage: 4 G, EVERY 1 DAY
     Route: 048
     Dates: start: 20190110, end: 20190116
  38. FLUCLOXACILLIN [Concomitant]
     Active Substance: FLUCLOXACILLIN
     Dosage: 1 G
     Route: 048
     Dates: start: 201806, end: 201806
  39. FLUCLOXACILLIN [Concomitant]
     Active Substance: FLUCLOXACILLIN
     Dosage: 2000 MG, EVERY 1 DAY
     Route: 048
     Dates: start: 20190117
  40. FLUCLOXACILLIN [Concomitant]
     Active Substance: FLUCLOXACILLIN
     Dosage: 2000 MG, EVERY 1 DAY
     Route: 048
     Dates: start: 20181017
  41. FLUCLOXACILLIN [Concomitant]
     Active Substance: FLUCLOXACILLIN
     Dosage: 2000 MG, EVERY 1 DAY
     Route: 048
     Dates: start: 20180924, end: 20181004
  42. FLUCLOXACILLIN [Concomitant]
     Active Substance: FLUCLOXACILLIN
     Dosage: 1000 MG, EVERY 1 DAY
     Route: 048
     Dates: start: 20181018, end: 20181115
  43. FLUCLOXACILLIN [Concomitant]
     Active Substance: FLUCLOXACILLIN
     Dosage: 2000 MG, EVERY 1 DAY
     Route: 048
     Dates: start: 20180316, end: 20180330
  44. FLUCLOXACILLIN [Concomitant]
     Active Substance: FLUCLOXACILLIN
     Indication: Product used for unknown indication
     Dosage: 4 G, EVERY 1 DAY
     Route: 042
     Dates: start: 20190110, end: 20190116
  45. FLUCLOXACILLIN [Concomitant]
     Active Substance: FLUCLOXACILLIN
     Dosage: 4 G, EVERY 1 DAY
     Route: 042
     Dates: start: 20181005, end: 20181008
  46. FLUCLOXACILLIN [Concomitant]
     Active Substance: FLUCLOXACILLIN
     Dosage: 8 G, EVERY 1 DAY
     Route: 042
     Dates: start: 20180606, end: 20180608
  47. FLUCLOXACILLIN [Concomitant]
     Active Substance: FLUCLOXACILLIN
     Dosage: 2000MG, EVERY 1 DAY
     Route: 042
     Dates: start: 20190117
  48. FLUCLOXACILLIN [Concomitant]
     Active Substance: FLUCLOXACILLIN
     Dosage: 1000MG, EVERY 1 DAY
     Route: 042
     Dates: start: 20181018, end: 20181115
  49. FLUCLOXACILLIN [Concomitant]
     Active Substance: FLUCLOXACILLIN
     Dosage: 4G, EVERY 1 DAY
     Route: 042
     Dates: start: 20190107, end: 20190110
  50. FLUCLOXACILLIN [Concomitant]
     Active Substance: FLUCLOXACILLIN
     Dosage: 2000MG, EVERY 1 DAY
     Route: 042
     Dates: start: 20180924, end: 20181004
  51. FLUCLOXACILLIN [Concomitant]
     Active Substance: FLUCLOXACILLIN
     Dosage: 2000MG, EVERY 1 DAY
     Route: 042
     Dates: start: 20180316, end: 20180330
  52. FLUCLOXACILLIN [Concomitant]
     Active Substance: FLUCLOXACILLIN
     Dosage: 4G, EVERY 1 DAY
     Route: 042
     Dates: start: 201806, end: 201806
  53. FLUCLOXACILLIN [Concomitant]
     Active Substance: FLUCLOXACILLIN
     Dosage: 2000MG, EVERY 1 DAY
     Route: 042
     Dates: start: 20181017
  54. POLYETHYLENE GLYCOL 3350\POTASSIUM CHLORIDE\SODIUM BICARBONATE\SODIUM [Concomitant]
     Active Substance: POLYETHYLENE GLYCOL 3350\POTASSIUM CHLORIDE\SODIUM BICARBONATE\SODIUM CHLORIDE
     Dosage: UNK
     Route: 048
     Dates: start: 201810
  55. LOPERAMIDE [Concomitant]
     Active Substance: LOPERAMIDE
     Dosage: 2 MG
     Route: 048
     Dates: start: 20180320
  56. METRONIDAZOLE [Concomitant]
     Active Substance: METRONIDAZOLE
     Dosage: 1500 MG, EVERY 1 DAY
     Route: 042
     Dates: start: 20180606, end: 20180607
  57. NORTRIPTYLINE [Concomitant]
     Active Substance: NORTRIPTYLINE
     Dosage: 10 MG, EVERY 1 DAY
     Route: 048
     Dates: start: 20201008, end: 20201025
  58. ORAMORPH SR SUSTAINED RELEASE [Concomitant]
     Active Substance: MORPHINE SULFATE
     Dosage: 5 MG
     Dates: start: 20180215
  59. ORAMORPH SR SUSTAINED RELEASE [Concomitant]
     Active Substance: MORPHINE SULFATE
     Dosage: 5 MG, EVERY 1 DAY
     Route: 048
     Dates: start: 20180604, end: 20180605
  60. ACETAMINOPHEN [Concomitant]
     Active Substance: ACETAMINOPHEN
     Dosage: 1 G
     Route: 048
     Dates: start: 20180129
  61. PULMOZYME [Concomitant]
     Active Substance: DORNASE ALFA
     Dosage: 20 MG, EVERY 1 DAY
     Dates: start: 20181005, end: 20181007
  62. PULMOZYME [Concomitant]
     Active Substance: DORNASE ALFA
     Dosage: 10 MG, EVERY 1 DAY
     Dates: start: 20190107, end: 20190110
  63. ACETAMINOPHEN\CODEINE PHOSPHATE [Concomitant]
     Active Substance: ACETAMINOPHEN\CODEINE PHOSPHATE
     Dosage: DOSE: 2, EVERY 1 DAY
     Route: 048
     Dates: start: 20180129, end: 20180215
  64. PIPERACILLIN SODIUM\TAZOBACTAM SODIUM [Concomitant]
     Active Substance: PIPERACILLIN SODIUM\TAZOBACTAM SODIUM
     Dosage: 4.5 G
     Dates: start: 20180603, end: 20180606
  65. TRIMOVATE [Concomitant]
     Active Substance: CLOBETASONE BUTYRATE\NYSTATIN\OXYTETRACYCLINE CALCIUM
     Dosage: 60 G, EVERY 1 DAY
     Route: 061
     Dates: start: 20200214, end: 20200228

REACTIONS (5)
  - Disease progression [Fatal]
  - Neuropathy peripheral [Not Recovered/Not Resolved]
  - Paraesthesia [Not Recovered/Not Resolved]
  - Arthralgia [Recovered/Resolved]
  - Off label use [Unknown]

NARRATIVE: CASE EVENT DATE: 20190201
